FAERS Safety Report 18842914 (Version 2)
Quarter: 2021Q3

REPORT INFORMATION
  Report Type: Spontaneous
  Country: US (occurrence: US)
  Receive Date: 20210203
  Receipt Date: 20210910
  Transmission Date: 20211014
  Serious: Yes (Hospitalization)
  Sender: FDA-Public Use
  Company Number: US-TEVA-2021-US-1874819

PATIENT
  Age: 17 Year
  Sex: Female

DRUGS (3)
  1. PREDNISONE. [Suspect]
     Active Substance: PREDNISONE
     Indication: IMMUNOSUPPRESSANT DRUG THERAPY
     Route: 065
  2. TACROLIMUS. [Suspect]
     Active Substance: TACROLIMUS
     Indication: IMMUNOSUPPRESSANT DRUG THERAPY
     Route: 065
  3. MYCOPHENOLATE [Suspect]
     Active Substance: MYCOPHENOLIC ACID
     Indication: IMMUNOSUPPRESSANT DRUG THERAPY
     Route: 065

REACTIONS (9)
  - Pyelonephritis [Not Recovered/Not Resolved]
  - Hyperammonaemia [Recovered/Resolved]
  - Complications of transplanted kidney [Not Recovered/Not Resolved]
  - Encephalopathy [Recovered/Resolved]
  - Ureaplasma infection [Recovered/Resolved]
  - Polyarthritis [Recovered/Resolved]
  - Focal segmental glomerulosclerosis [Not Recovered/Not Resolved]
  - Acute kidney injury [Not Recovered/Not Resolved]
  - Nephrotic syndrome [Not Recovered/Not Resolved]
